FAERS Safety Report 25445324 (Version 1)
Quarter: 2025Q2

REPORT INFORMATION
  Report Type: Spontaneous
  Country: JP (occurrence: JP)
  Receive Date: 20250617
  Receipt Date: 20250617
  Transmission Date: 20250717
  Serious: Yes (Hospitalization)
  Sender: Phathom Pharmaceuticals
  Company Number: JP-PHATHOM PHARMACEUTICALS INC.-2025PHT01497

PATIENT

DRUGS (1)
  1. VONOPRAZAN [Suspect]
     Active Substance: VONOPRAZAN
     Indication: Post procedural haemorrhage
     Route: 048

REACTIONS (1)
  - Cerebral infarction [Recovered/Resolved]
